FAERS Safety Report 16487975 (Version 1)
Quarter: 2019Q2

REPORT INFORMATION
  Report Type: Spontaneous
  Country: FR (occurrence: FR)
  Receive Date: 20190627
  Receipt Date: 20190627
  Transmission Date: 20190711
  Serious: Yes (Other)
  Sender: FDA-Public Use
  Company Number: FR-MYLANLABS-2019M1059583

PATIENT
  Age: 70 Year
  Sex: Female
  Weight: 65 kg

DRUGS (6)
  1. DEXCHLORPHENIRAMINE [Concomitant]
     Active Substance: DEXCHLORPHENIRAMINE
     Dosage: 6 MILLIGRAM, CYCLE
     Route: 042
     Dates: start: 20181220
  2. CARBOPLATIN. [Suspect]
     Active Substance: CARBOPLATIN
     Indication: UTERINE NEOPLASM
     Dosage: 220 MILLIGRAM, CYCLE
     Route: 041
     Dates: start: 20181220, end: 20181220
  3. RANITIDINE                         /00550802/ [Concomitant]
     Active Substance: RANITIDINE
     Dosage: 50 MILLIGRAM, CYCLE
     Route: 042
     Dates: start: 20181220
  4. GLUCOSE                            /00203503/ [Concomitant]
     Active Substance: DEXTROSE MONOHYDRATE
     Dosage: 250 MILLIGRAM, CYCLE
     Route: 042
     Dates: start: 20181220
  5. PACLITAXEL. [Concomitant]
     Active Substance: PACLITAXEL
     Indication: UTERINE NEOPLASM
     Dosage: 122 MILLIGRAM, CYCLE
     Route: 041
     Dates: start: 20181220, end: 20181220
  6. METHYLPREDNISOLONE. [Concomitant]
     Active Substance: METHYLPREDNISOLONE
     Dosage: 60 MILLIGRAM, CYCLE
     Route: 042
     Dates: start: 20181220

REACTIONS (4)
  - Feeling hot [Recovered/Resolved]
  - Pruritus [Recovered/Resolved]
  - Erythema [Recovered/Resolved]
  - Rash [Recovered/Resolved]

NARRATIVE: CASE EVENT DATE: 20181220
